FAERS Safety Report 7961182-8 (Version None)
Quarter: 2011Q4

REPORT INFORMATION
  Report Type: 
  Country: None (occurrence: None)
  Receive Date: 20111207
  Receipt Date: 20111128
  Transmission Date: 20120403
  Serious: Yes (Hospitalization)
  Sender: FDA-Public Use
  Company Number: FR-PFIZER INC-2011127442

PATIENT
  Age: 65 Year
  Sex: Female

DRUGS (11)
  1. AMLODIPINE BESYLATE AND OLMESARTAN MEDOXOMIL [Suspect]
     Dosage: UNK
     Route: 048
     Dates: end: 20110316
  2. OMEPRAZOLE [Concomitant]
     Dosage: UNK
     Dates: end: 20110624
  3. AMLODIPINE BESYLATE AND OLMESARTAN MEDOXOMIL [Suspect]
     Dosage: UNK
     Route: 048
     Dates: start: 20110322, end: 20110620
  4. AMLODIPINE [Suspect]
     Dosage: UNK
     Dates: start: 20110321
  5. ENDOTELON [Concomitant]
     Indication: PRODUCT USED FOR UNKNOWN INDICATION
  6. PIASCLEDINE [Concomitant]
     Indication: PRODUCT USED FOR UNKNOWN INDICATION
  7. KETOPROFEN [Suspect]
     Dosage: UNK
     Route: 048
     Dates: end: 20110317
  8. EZETIMIBE/SIMVASTATIN [Concomitant]
     Dosage: UNK
     Dates: end: 20110624
  9. FEBUXOSTAT [Suspect]
     Dosage: 80 MG, UNK
     Route: 048
     Dates: start: 20110322, end: 20110427
  10. COLCHICINE [Suspect]
     Dosage: UNK
     Route: 048
     Dates: end: 20110316
  11. LASIX [Suspect]
     Dosage: 40 MG, UNK
     Route: 048
     Dates: start: 20110322, end: 20110427

REACTIONS (1)
  - RENAL FAILURE ACUTE [None]
